FAERS Safety Report 4401056-2 (Version None)
Quarter: 2004Q3

REPORT INFORMATION
  Report Type: 
  Country: None (occurrence: None)
  Receive Date: 20040907
  Receipt Date: 20031010
  Transmission Date: 20050211
  Serious: Yes (Other)
  Sender: FDA-Public Use
  Company Number: US-BRISTOL-MYERS SQUIBB COMPANY-12408688

PATIENT
  Age: 71 Year
  Sex: Male
  Weight: 106 kg

DRUGS (14)
  1. COUMADIN [Suspect]
     Indication: ATRIAL FIBRILLATION
     Dosage: DOSE:^2 MG, 1 AND 1/2 TABLETS^. RESTATED 26SEP03:2MG M-W-F,+ 3MG TU-TH- SA-SU.
     Route: 048
  2. ECONAZOLE NITRATE [Suspect]
  3. BROMOCRIPTINE MESYLATE [Concomitant]
  4. DISOPYRAMIDE [Concomitant]
  5. DYAZIDE [Concomitant]
  6. RANITIDINE [Concomitant]
  7. PREDNISONE [Concomitant]
  8. METHYLPREDNISOLONE [Concomitant]
     Dates: start: 20030902
  9. FLUDROCORTISONE ACETATE [Concomitant]
  10. TESTOSTERONE [Concomitant]
     Dosage: ROUTE: INJECTION.
     Route: 030
  11. LEVOTHYROXINE SODIUM [Concomitant]
  12. NEXIUM [Concomitant]
  13. FOLIC ACID [Concomitant]
  14. TYLENOL [Concomitant]
     Dosage: TAKEN SPORACTICALLY.

REACTIONS (1)
  - INTERNATIONAL NORMALISED RATIO INCREASED [None]
